FAERS Safety Report 8306701-7 (Version None)
Quarter: 2012Q2

REPORT INFORMATION
  Report Type: 
  Country: None (occurrence: None)
  Receive Date: 20120424
  Receipt Date: 20120417
  Transmission Date: 20120825
  Serious: Yes (Hospitalization, Other)
  Sender: FDA-Public Use
  Company Number: CA-US-EMD SERONO, INC.-7127554

PATIENT
  Sex: Female

DRUGS (2)
  1. REBIF [Suspect]
     Indication: MULTIPLE SCLEROSIS
     Route: 058
     Dates: start: 20090410, end: 20100424
  2. REBIF [Suspect]
     Route: 058
     Dates: start: 20100426

REACTIONS (8)
  - SWELLING [None]
  - URINARY TRACT INFECTION [None]
  - EATING DISORDER [None]
  - DYSSTASIA [None]
  - VOMITING [None]
  - HAEMOGLOBIN DECREASED [None]
  - CONSTIPATION [None]
  - FATIGUE [None]
